FAERS Safety Report 6218156-7 (Version None)
Quarter: 2009Q2

REPORT INFORMATION
  Report Type: 
  Country: None (occurrence: None)
  Receive Date: 20090608
  Receipt Date: 20090605
  Transmission Date: 20091009
  Serious: Yes (Death, Hospitalization, Other)
  Sender: FDA-Public Use
  Company Number: PHHY2009JP12013

PATIENT
  Sex: Male

DRUGS (8)
  1. ZOLEDRONIC ACID [Suspect]
     Indication: PROSTATE CANCER
     Dosage: 4 MG, QMO
     Route: 042
     Dates: start: 20071203, end: 20080523
  2. CASODEX [Concomitant]
     Dosage: 80MG
     Route: 048
     Dates: start: 20071203, end: 20080104
  3. GLYCYRON [Concomitant]
     Dosage: 6DF
     Route: 048
     Dates: start: 20080201, end: 20080301
  4. PROHEPARUM [Concomitant]
     Dosage: 6DF
     Route: 048
     Dates: start: 20080201, end: 20080301
  5. DUROTEP [Concomitant]
     Dosage: 5 MG
     Route: 061
     Dates: start: 20080513, end: 20080604
  6. OXINORM [Concomitant]
     Dosage: 5 MG
     Route: 048
     Dates: start: 20080514, end: 20080604
  7. PURSENNID [Concomitant]
     Dosage: 2 DF
     Route: 048
     Dates: start: 20080512, end: 20080604
  8. MAGLAX [Concomitant]
     Dosage: 6 DF
     Route: 048
     Dates: start: 20080512, end: 20080604

REACTIONS (5)
  - ALANINE AMINOTRANSFERASE INCREASED [None]
  - BACK PAIN [None]
  - BLOOD BILIRUBIN INCREASED [None]
  - BLOOD CALCIUM DECREASED [None]
  - MALIGNANT NEOPLASM PROGRESSION [None]
